FAERS Safety Report 5874794-2 (Version None)
Quarter: 2008Q3

REPORT INFORMATION
  Report Type: 
  Country: None (occurrence: None)
  Receive Date: 20080903
  Receipt Date: 20080822
  Transmission Date: 20090109
  Serious: Yes (Other)
  Sender: FDA-Public Use
  Company Number: 2008EN000127

PATIENT
  Age: 61 Year
  Sex: Female

DRUGS (9)
  1. ABELCET [Suspect]
     Indication: FUNGAL INFECTION
     Dosage: 450 MG; QD; IV, 500 MG; QD; IV
     Route: 042
     Dates: start: 20080730, end: 20080730
  2. ABELCET [Suspect]
     Indication: FUNGAL INFECTION
     Dosage: 450 MG; QD; IV, 500 MG; QD; IV
     Route: 042
     Dates: start: 20080731, end: 20080731
  3. CHLORPHENAMINE [Concomitant]
  4. VANCOMYCIN HYDROCHLORIDE [Concomitant]
  5. FENTANYL [Concomitant]
  6. PREGABALIN [Concomitant]
  7. FERROUS FUMARATE [Concomitant]
  8. MEROPENEM [Concomitant]
  9. ESCITALOPRAM [Concomitant]

REACTIONS (5)
  - BLOOD PRESSURE SYSTOLIC DECREASED [None]
  - BODY TEMPERATURE INCREASED [None]
  - CHILLS [None]
  - OXYGEN SATURATION DECREASED [None]
  - RESPIRATORY RATE INCREASED [None]
